FAERS Safety Report 13818725 (Version 2)
Quarter: 2017Q3

REPORT INFORMATION
  Report Type: Spontaneous
  Country: US (occurrence: US)
  Receive Date: 20170801
  Receipt Date: 20170814
  Transmission Date: 20171127
  Serious: Yes (Disabling, Other)
  Sender: FDA-Public Use
  Company Number: US-PFIZER INC-2017326967

PATIENT
  Age: 9 Year
  Sex: Male
  Weight: 43 kg

DRUGS (2)
  1. GENOTROPIN [Suspect]
     Active Substance: SOMATROPIN
     Indication: GROWTH RETARDATION
     Dosage: 1.6 MG, ALTERNATE DAY (ALTERNATE DAILY BETWEEN 1.4 MG AND 1.6 MG TO ACHIEVE 1.5 MG UNDER THE SKIN)
     Route: 058
     Dates: start: 201605
  2. GENOTROPIN [Suspect]
     Active Substance: SOMATROPIN
     Indication: BODY HEIGHT BELOW NORMAL
     Dosage: 1.4 MG, ALTERNATE DAY (ALTERNATE DAILY BETWEEN 1.4 MG AND 1.6 MG TO ACHIEVE 1.5 MG UNDER THE SKIN)
     Route: 058
     Dates: start: 201605

REACTIONS (6)
  - Migraine [Unknown]
  - Nausea [Unknown]
  - Headache [Not Recovered/Not Resolved]
  - Vomiting [Recovered/Resolved]
  - Condition aggravated [Unknown]
  - Dehydration [Unknown]

NARRATIVE: CASE EVENT DATE: 201610
